FAERS Safety Report 4393773-8 (Version None)
Quarter: 2004Q3

REPORT INFORMATION
  Report Type: 
  Country: None (occurrence: None)
  Receive Date: 20040706
  Receipt Date: 20040618
  Transmission Date: 20050211
  Serious: Yes (Hospitalization)
  Sender: FDA-Public Use
  Company Number: F01200401514

PATIENT
  Age: 66 Year
  Sex: Female

DRUGS (2)
  1. OXALIPLATIN [Suspect]
     Dosage: 180 MG Q3W, INTRAVENOUS NOS
     Route: 042
  2. CAPECITABINE - TABLET - 1400 MG [Suspect]
     Dosage: 1400 MG TWICE A DAY PER ORAL FROM D1 TO D15 ORAL
     Route: 048
     Dates: end: 20040603

REACTIONS (5)
  - ALANINE AMINOTRANSFERASE INCREASED [None]
  - ANOREXIA [None]
  - BLOOD LACTATE DEHYDROGENASE INCREASED [None]
  - GENERAL PHYSICAL HEALTH DETERIORATION [None]
  - WEIGHT DECREASED [None]
